FAERS Safety Report 4436549-5 (Version None)
Quarter: 2004Q3

REPORT INFORMATION
  Report Type: 
  Country: None (occurrence: None)
  Receive Date: 20040830
  Receipt Date: 20040622
  Transmission Date: 20050211
  Serious: No
  Sender: FDA-Public Use
  Company Number: US-BRISTOL-MYERS SQUIBB COMPANY-12622361

PATIENT
  Age: 48 Year
  Sex: Female

DRUGS (5)
  1. ABILIFY [Suspect]
     Indication: PERSONALITY DISORDER
     Route: 048
     Dates: start: 20031101
  2. ABILIFY [Suspect]
     Indication: COMPLETED SUICIDE
     Route: 048
     Dates: start: 20031101
  3. ABILIFY [Suspect]
     Indication: ANOREXIA
     Route: 048
     Dates: start: 20031101
  4. NEURONTIN [Concomitant]
  5. TEGRETOL [Concomitant]

REACTIONS (1)
  - HYPERTHYROIDISM [None]
